FAERS Safety Report 9093416 (Version 6)
Quarter: 2014Q3

REPORT INFORMATION
  Report Type: Spontaneous
  Country: US (occurrence: US)
  Receive Date: 20130218
  Receipt Date: 20140819
  Transmission Date: 20150326
  Serious: Yes (Hospitalization, Disabling)
  Sender: FDA-Public Use
  Company Number: US-009507513-1302USA006641

PATIENT
  Sex: Female
  Weight: 68.27 kg

DRUGS (1)
  1. NUVARING [Suspect]
     Active Substance: ETHINYL ESTRADIOL\ETONOGESTREL
     Indication: CONTRACEPTION
     Dosage: UNK
     Dates: start: 200911, end: 201208

REACTIONS (10)
  - Deep vein thrombosis [Not Recovered/Not Resolved]
  - Chest pain [Unknown]
  - Arthralgia [Unknown]
  - Venous stenosis [Unknown]
  - Muscle strain [Unknown]
  - Ligament sprain [Unknown]
  - Depression [Recovered/Resolved]
  - Ecchymosis [Unknown]
  - Varicose vein [Unknown]
  - Vertigo [Unknown]

NARRATIVE: CASE EVENT DATE: 2012
